FAERS Safety Report 9660738 (Version 1)
Quarter: 2013Q4

REPORT INFORMATION
  Report Type: Spontaneous
  Country: CL (occurrence: CL)
  Receive Date: 20131031
  Receipt Date: 20131031
  Transmission Date: 20140711
  Serious: Yes (Other)
  Sender: FDA-Public Use
  Company Number: CL-PFIZER INC-2013308296

PATIENT
  Age: 91 Year
  Sex: Female

DRUGS (5)
  1. XALATAN [Suspect]
     Indication: GLAUCOMA
     Dosage: UNK
     Dates: start: 1993
  2. CARVEDILOL [Concomitant]
  3. ENALAPRIL [Concomitant]
  4. CLOPIDOGREL [Concomitant]
  5. OMEPRAZOLE [Concomitant]

REACTIONS (1)
  - Senile dementia [Not Recovered/Not Resolved]
